FAERS Safety Report 8891400 (Version 1)
Quarter: 2012Q4

REPORT INFORMATION
  Report Type: Spontaneous
  Country: US (occurrence: None)
  Receive Date: 20121105
  Receipt Date: 20121105
  Transmission Date: 20130627
  Serious: No
  Sender: FDA-Public Use
  Company Number: None

PATIENT
  Age: 48 Year
  Sex: Female

DRUGS (2)
  1. ONFI [Suspect]
     Indication: SEIZURES
     Dosage: increase by 5mg every 2 wks until dose of 10mg tid (+1 tabs) is needed 

hasn^t started waiting for approval
  2. ONFI [Suspect]
     Indication: LENNOX-GASTAUT SYNDROME
     Dosage: increase by 5mg every 2 wks until dose of 10mg tid (+1 tabs) is needed 

hasn^t started waiting for approval

REACTIONS (2)
  - Convulsion [None]
  - Drug ineffective [None]
